FAERS Safety Report 15906605 (Version 1)
Quarter: 2019Q1

REPORT INFORMATION
  Report Type: Spontaneous
  Country: US (occurrence: US)
  Receive Date: 20190204
  Receipt Date: 20190204
  Transmission Date: 20190417
  Serious: No
  Sender: FDA-Public Use
  Company Number: US-SA-2018SA060841

PATIENT
  Age: 47 Year
  Sex: Female

DRUGS (23)
  1. HYDROCHLOROTHIAZIDE. [Concomitant]
     Active Substance: HYDROCHLOROTHIAZIDE
     Dosage: UNK UNK,UNK
     Route: 065
  2. VITAMIN B1 [Concomitant]
     Active Substance: THIAMINE HYDROCHLORIDE
  3. MOVANTIK [Concomitant]
     Active Substance: NALOXEGOL OXALATE
     Dosage: UNK UNK,UNK
     Route: 065
  4. SAVELLA [Concomitant]
     Active Substance: MILNACIPRAN HYDROCHLORIDE
  5. BACLOFEN. [Concomitant]
     Active Substance: BACLOFEN
     Dosage: UNK UNK,UNK
     Route: 065
  6. PROTONIX [OMEPRAZOLE] [Concomitant]
     Active Substance: OMEPRAZOLE
  7. FLAXSEED [Concomitant]
     Active Substance: FLAX SEED
  8. THIAMINE. [Concomitant]
     Active Substance: THIAMINE
     Dosage: UNK UNK,UNK
     Route: 065
  9. OXYCODONE HYDROCHLORIDE;PARACETAMOL [Concomitant]
     Active Substance: ACETAMINOPHEN\OXYCODONE HYDROCHLORIDE
     Dosage: UNK UNK,UNK
     Route: 065
  10. TIZANIDINE HCL [Concomitant]
     Active Substance: TIZANIDINE HYDROCHLORIDE
  11. SOVEL [Concomitant]
     Dosage: UNK UNK,UNK
     Route: 065
  12. RANITIDINE HCL [Concomitant]
     Active Substance: RANITIDINE HYDROCHLORIDE
     Dosage: UNK UNK,UNK
     Route: 065
  13. OMEPRAZOLE. [Concomitant]
     Active Substance: OMEPRAZOLE
     Dosage: UNK UNK,UNK
     Route: 065
  14. METFORMIN HCL [Concomitant]
     Active Substance: METFORMIN HYDROCHLORIDE
     Dosage: UNK UNK,UNK
     Route: 065
  15. ASPIRIN. [Concomitant]
     Active Substance: ASPIRIN
     Dosage: UNK UNK,UNK
     Route: 065
  16. MAGNESIUM [Concomitant]
     Active Substance: MAGNESIUM
  17. SYNTHROID [Concomitant]
     Active Substance: LEVOTHYROXINE SODIUM
  18. AUBAGIO [Suspect]
     Active Substance: TERIFLUNOMIDE
     Indication: MULTIPLE SCLEROSIS
     Dosage: 14 MG,QD
     Route: 048
     Dates: start: 201801
  19. PERCOCET [OXYCODONE HYDROCHLORIDE;OXYCODONE TEREPHTHALATE;PARACETAMOL] [Concomitant]
     Active Substance: ACETAMINOPHEN\OXYCODONE HYDROCHLORIDE\OXYCODONE TEREPHTHALATE
  20. GABAPENTIN. [Concomitant]
     Active Substance: GABAPENTIN
     Dosage: UNK UNK,UNK
     Route: 065
  21. LINUM USITATISSIMUM SEED OIL [Concomitant]
     Dosage: UNK UNK,UNK
     Route: 065
  22. RAYOS [Concomitant]
     Active Substance: PREDNISONE
     Dosage: UNK UNK,UNK
     Route: 065
  23. VITAMIN D2 [Concomitant]
     Active Substance: ERGOCALCIFEROL

REACTIONS (3)
  - Depression [Unknown]
  - Paraesthesia [Unknown]
  - Muscle spasms [Unknown]

NARRATIVE: CASE EVENT DATE: 2018
